FAERS Safety Report 9596107 (Version 5)
Quarter: 2014Q2

REPORT INFORMATION
  Report Type: Spontaneous
  Country: JP (occurrence: JP)
  Receive Date: 20131004
  Receipt Date: 20140605
  Transmission Date: 20141212
  Serious: Yes (Hospitalization)
  Sender: FDA-Public Use
  Company Number: JP-ASTRAZENECA-2013SE72537

PATIENT
  Age: 14013 Day
  Sex: Female
  Weight: 56 kg

DRUGS (1)
  1. ZOLADEX [Suspect]
     Indication: UTERINE LEIOMYOMA
     Route: 058
     Dates: start: 20130907, end: 20130907

REACTIONS (2)
  - Cerebral infarction [Unknown]
  - Genital haemorrhage [Unknown]
